FAERS Safety Report 8535904-1 (Version None)
Quarter: 2012Q3

REPORT INFORMATION
  Report Type: 
  Country: None (occurrence: None)
  Receive Date: 20120725
  Receipt Date: 20120717
  Transmission Date: 20120928
  Serious: Yes (Other)
  Sender: FDA-Public Use
  Company Number: PHEH2012US014221

PATIENT
  Sex: Female

DRUGS (9)
  1. VITAMIN B-12 [Concomitant]
     Dosage: UNK UKN, UNK
  2. VITAMIN D [Concomitant]
     Dosage: UNK UKN, UNK
  3. DOXEPIN HYDROCHLORIDE [Concomitant]
     Dosage: UNK UKN, UNK
  4. EFFEXOR XR [Concomitant]
     Dosage: UNK UKN, UNK
  5. LUNESTA [Concomitant]
     Dosage: UNK UKN, UNK
  6. NEXIUM [Concomitant]
     Dosage: UNK UKN, UNK
  7. GILENYA [Suspect]
     Dosage: 0.5 MG, QD
     Route: 048
     Dates: start: 20120216, end: 20120717
  8. IRON [Concomitant]
     Dosage: UNK UKN, UNK
  9. HYDROCHLOROTHIAZIDE [Concomitant]
     Dosage: UNK UKN, UNK

REACTIONS (1)
  - MYOCARDIAL ISCHAEMIA [None]
